FAERS Safety Report 15998189 (Version 1)
Quarter: 2019Q1

REPORT INFORMATION
  Report Type: Spontaneous
  Country: GB (occurrence: GB)
  Receive Date: 20190223
  Receipt Date: 20190223
  Transmission Date: 20190418
  Serious: Yes (Other)
  Sender: FDA-Public Use
  Company Number: GB-ACCORD-108488

PATIENT
  Age: 71 Year
  Sex: Female
  Weight: 64 kg

DRUGS (8)
  1. FUROSEMIDE. [Suspect]
     Active Substance: FUROSEMIDE
     Indication: OEDEMA
     Dates: start: 20180710
  2. MENTHOL. [Concomitant]
     Active Substance: MENTHOL
     Dosage: APPLY
     Dates: start: 20180530, end: 20180627
  3. DERMOVATE [Concomitant]
     Active Substance: CLOBETASOL
     Dosage: 1-2 TIMES/DAY
     Dates: start: 20180530, end: 20180627
  4. CLARITHROMYCIN. [Concomitant]
     Active Substance: CLARITHROMYCIN
     Dosage: FOR 7 DAYS
     Dates: start: 20180614, end: 20180621
  5. CETOMACROGOL 1000/CETOSTEARYL ALCOHOL/METHYLPARABEN E218/PARAFFIN/PROPYLPARABEN E216/WHITE SOFT PARA [Concomitant]
     Indication: PRURITUS
     Dosage: APPLY
     Dates: start: 20180614
  6. DERMOL [Concomitant]
     Active Substance: BENZALKONIUM CHLORIDE\CHLORHEXIDINE HYDROCHLORIDE\ISOPROPYL MYRISTATE\PARAFFIN
     Dosage: USE AS A SOAP SUBSTITUTE
     Dates: start: 20170822
  7. PREDNISOLONE. [Concomitant]
     Active Substance: PREDNISOLONE
     Dosage: FOR 3 DAYS
     Dates: start: 20180710
  8. CHLORPHENAMINE/CHLORPHENAMINE MALEATE/CHLORPHENAMINE RESINATE/CHLORPHENAMINE TANNATE [Concomitant]
     Indication: HYPERSENSITIVITY
     Dosage: EVERY 4-6 HOURS TO SUPPRESS ALLERGIC SYMPTOMS
     Dates: start: 20180710

REACTIONS (1)
  - Face oedema [Recovering/Resolving]

NARRATIVE: CASE EVENT DATE: 20180710
